FAERS Safety Report 4618926-2 (Version None)
Quarter: 2005Q2

REPORT INFORMATION
  Report Type: 
  Country: None (occurrence: None)
  Receive Date: 20050310
  Receipt Date: 20030623
  Transmission Date: 20051028
  Serious: Yes (Hospitalization)
  Sender: FDA-Public Use
  Company Number: F03200300012

PATIENT
  Age: 57 Year
  Sex: Female

DRUGS (6)
  1. OXALIPLATIN - SOLUTION - 130 MG/M2 [Suspect]
     Indication: COLON CANCER
     Dosage: 130 MG/M2 Q3W - INTRAVENOUS NOS
     Route: 042
     Dates: start: 20030425, end: 20030425
  2. OXALIPLATIN - SOLUTION - 130 MG/M2 [Suspect]
     Indication: RECTAL CANCER
     Dosage: 130 MG/M2 Q3W - INTRAVENOUS NOS
     Route: 042
     Dates: start: 20030425, end: 20030425
  3. OSI-774 - TABLET - 150 MG [Suspect]
     Indication: COLON CANCER
     Dosage: 150 MG QD - ORAL
     Route: 048
     Dates: start: 20030425, end: 20030502
  4. OSI-774 - TABLET - 150 MG [Suspect]
     Indication: RECTAL CANCER
     Dosage: 150 MG QD - ORAL
     Route: 048
     Dates: start: 20030425, end: 20030502
  5. CAPECITABINE - TABLET - 1000 MG/MG2 [Suspect]
     Indication: COLON CANCER
     Dosage: 21 DAY CYCLES: 1000 MG/M2 EVERY 12 HOURS FOR 14 DAYS, THEN 7-DAY REST.   - ORAL
     Route: 048
     Dates: start: 20030425, end: 20030502
  6. CAPECITABINE - TABLET - 1000 MG/MG2 [Suspect]
     Indication: RECTAL CANCER
     Dosage: 21 DAY CYCLES: 1000 MG/M2 EVERY 12 HOURS FOR 14 DAYS, THEN 7-DAY REST.   - ORAL
     Route: 048
     Dates: start: 20030425, end: 20030502

REACTIONS (4)
  - DEHYDRATION [None]
  - DIARRHOEA [None]
  - NAUSEA [None]
  - VOMITING [None]
